FAERS Safety Report 24565739 (Version 1)
Quarter: 2024Q4

REPORT INFORMATION
  Report Type: Report from Study
  Country: US (occurrence: US)
  Receive Date: 20241030
  Receipt Date: 20241030
  Transmission Date: 20250115
  Serious: Yes (Other)
  Sender: ROCHE
  Company Number: US-ROCHE-10000117499

PATIENT
  Age: 60 Year
  Sex: Female
  Weight: 104.32 kg

DRUGS (5)
  1. OCREVUS [Suspect]
     Active Substance: OCRELIZUMAB
     Indication: Secondary progressive multiple sclerosis
     Route: 042
  2. OCREVUS [Suspect]
     Active Substance: OCRELIZUMAB
     Indication: Relapsing multiple sclerosis
  3. PROPRANOLOL [Concomitant]
     Active Substance: PROPRANOLOL HYDROCHLORIDE
     Indication: Tremor
     Route: 048
  4. NORTRIPTYLINE [Concomitant]
     Active Substance: NORTRIPTYLINE
     Route: 048
  5. MODAFINIL [Concomitant]
     Active Substance: MODAFINIL
     Indication: Fatigue
     Route: 048

REACTIONS (2)
  - Multiple sclerosis relapse [Not Recovered/Not Resolved]
  - Off label use [Unknown]

NARRATIVE: CASE EVENT DATE: 20230901
